FAERS Safety Report 8777289 (Version 1)
Quarter: 2012Q4

REPORT INFORMATION
  Report Type: 
  Country: US (occurrence: US)
  Receive Date: 20120910
  Receipt Date: 20120910
  Transmission Date: 20130627
  Serious: No
  Sender: FDA-Public Use
  Company Number: US-ASTRAZENECA-2012SE60554

PATIENT
  Age: 45 Year
  Sex: Male

DRUGS (3)
  1. SEROQUEL [Suspect]
     Indication: BIPOLAR DISORDER
     Route: 048
  2. SEROQUEL [Suspect]
     Indication: BIPOLAR DISORDER
     Route: 048
  3. SEROQUEL [Suspect]
     Indication: BIPOLAR DISORDER
     Dosage: GENERIC, HALF OF THE 400 MG TABLET
     Route: 048

REACTIONS (4)
  - Therapeutic response unexpected [Unknown]
  - Insomnia [Unknown]
  - Sleep disorder [Unknown]
  - Off label use [Unknown]
